FAERS Safety Report 8831189 (Version 1)
Quarter: 2012Q4

REPORT INFORMATION
  Report Type: 
  Country: US (occurrence: US)
  Receive Date: 20121008
  Receipt Date: 20121008
  Transmission Date: 20130627
  Serious: No
  Sender: FDA-Public Use
  Company Number: US-VERTEX PHARMACEUTICAL INC.-2012-021465

PATIENT
  Age: 55 None
  Sex: Female
  Weight: 61 kg

DRUGS (6)
  1. INCIVEK [Suspect]
     Indication: HEPATITIS C
     Dosage: 750 mg, tid
     Route: 048
     Dates: start: 20120830
  2. RIBAPAK [Suspect]
     Indication: HEPATITIS C
     Dosage: 600 mg, qd
     Route: 048
     Dates: start: 20120830
  3. PEGASYS [Suspect]
     Indication: HEPATITIS C
     Dosage: 180 ?g,weekly
     Route: 058
     Dates: start: 20120830
  4. OXYCONTIN [Concomitant]
     Indication: PAIN
     Dosage: UNK, prn
     Route: 048
  5. TRAZODONE [Concomitant]
     Indication: DEPRESSION
     Dosage: UNK, qd
     Route: 048
  6. BENADRYL                           /00000402/ [Concomitant]
     Indication: SLEEP DISORDER
     Dosage: 25-50mg

REACTIONS (3)
  - Cheilitis [Not Recovered/Not Resolved]
  - Stomatitis [Not Recovered/Not Resolved]
  - Rash erythematous [Recovered/Resolved]
